FAERS Safety Report 8139068-8 (Version None)
Quarter: 2012Q1

REPORT INFORMATION
  Report Type: 
  Country: None (occurrence: None)
  Receive Date: 20120215
  Receipt Date: 20120210
  Transmission Date: 20120608
  Serious: Yes (Other)
  Sender: FDA-Public Use
  Company Number: JP-PFIZER INC-2012037689

PATIENT
  Sex: Male

DRUGS (3)
  1. JUVELA [Concomitant]
     Dosage: UNK
  2. LYRICA [Suspect]
     Dosage: 75 MG, 1X/DAY
     Route: 048
     Dates: start: 20120127
  3. MECOBALAMIN [Concomitant]

REACTIONS (3)
  - MONOPLEGIA [None]
  - PAIN IN EXTREMITY [None]
  - HYPOAESTHESIA [None]
